FAERS Safety Report 17507879 (Version 1)
Quarter: 2020Q1

REPORT INFORMATION
  Report Type: Spontaneous
  Country: JP (occurrence: JP)
  Receive Date: 20200306
  Receipt Date: 20200306
  Transmission Date: 20200409
  Serious: Yes (Hospitalization)
  Sender: FDA-Public Use
  Company Number: JP-CELLTRION INC.-2020JP018341

PATIENT

DRUGS (7)
  1. INFLIXIMAB BS FOR I.V. INFUSION100 MG [NK] [Suspect]
     Active Substance: INFLIXIMAB
     Dosage: UNK
     Dates: start: 20190918
  2. AZANIN [Suspect]
     Active Substance: AZATHIOPRINE
     Indication: PRODUCT USE IN UNAPPROVED INDICATION
     Dosage: 50 MG, QD
     Route: 048
     Dates: start: 20171130
  3. INFLIXIMAB BS FOR I.V. INFUSION100 MG [NK] [Suspect]
     Active Substance: INFLIXIMAB
     Indication: CROHN^S DISEASE
     Dosage: 500 MG
     Route: 041
     Dates: start: 20190906
  4. INFLIXIMAB BS FOR I.V. INFUSION100 MG [NK] [Suspect]
     Active Substance: INFLIXIMAB
     Dosage: 500 MG
     Route: 041
     Dates: start: 20191015, end: 20191015
  5. MIYA-BM [Concomitant]
     Active Substance: CLOSTRIDIUM BUTYRICUM SPORES STRAIN M-55
     Indication: CROHN^S DISEASE
     Dosage: 6 TABLETS, QD
     Route: 048
     Dates: start: 20170708
  6. PENTASA [Concomitant]
     Active Substance: MESALAMINE
     Indication: CROHN^S DISEASE
     Dosage: 3 G, QD
     Route: 048
     Dates: start: 20170708
  7. IRRIBOW [Concomitant]
     Active Substance: RAMOSETRON HYDROCHLORIDE
     Dosage: UNK
     Route: 048
     Dates: start: 20180619

REACTIONS (8)
  - Tuberculosis [Unknown]
  - Spleen tuberculosis [Unknown]
  - Lymph node tuberculosis [Unknown]
  - Malaise [Recovered/Resolved]
  - Dyspnoea [Recovered/Resolved]
  - Overdose [Unknown]
  - Peritonitis [Unknown]
  - Viral infection [Recovering/Resolving]

NARRATIVE: CASE EVENT DATE: 20190918
